FAERS Safety Report 6178996-X (Version None)
Quarter: 2009Q2

REPORT INFORMATION
  Report Type: 
  Country: None (occurrence: None)
  Receive Date: 20090505
  Receipt Date: 20090424
  Transmission Date: 20091009
  Serious: Yes (Hospitalization, Other)
  Sender: FDA-Public Use
  Company Number: CA-CELGENEUS-028-21880-09031930

PATIENT
  Sex: Male

DRUGS (1)
  1. REVLIMID [Suspect]
     Indication: MULTIPLE MYELOMA
     Route: 048
     Dates: start: 20090302, end: 20090321

REACTIONS (3)
  - MULTIPLE MYELOMA [None]
  - NO THERAPEUTIC RESPONSE [None]
  - RESPIRATORY TRACT INFECTION VIRAL [None]
